FAERS Safety Report 19541490 (Version 2)
Quarter: 2022Q1

REPORT INFORMATION
  Report Type: Other
  Country: JP (occurrence: None)
  Receive Date: 20210713
  Receipt Date: 20220204
  Transmission Date: 20220423
  Serious: Yes (Hospitalization, Other)
  Sender: FDA-Public Use
  Company Number: JP-ROCHE-2864567

PATIENT

DRUGS (34)
  1. ERLOTINIB [Suspect]
     Active Substance: ERLOTINIB
     Indication: Neoplasm malignant
     Route: 065
  2. CAPECITABINE [Suspect]
     Active Substance: CAPECITABINE
     Indication: Neoplasm malignant
     Route: 065
  3. ALECTINIB [Suspect]
     Active Substance: ALECTINIB
     Indication: Neoplasm malignant
     Route: 065
  4. TEGAFUR\URACIL [Suspect]
     Active Substance: TEGAFUR\URACIL
     Indication: Neoplasm malignant
     Route: 065
  5. TS-1 [Suspect]
     Active Substance: GIMERACIL\OTERACIL\TEGAFUR
     Indication: Neoplasm malignant
     Route: 065
  6. TIPIRACIL HYDROCHLORIDE\TRIFLURIDINE [Suspect]
     Active Substance: TIPIRACIL HYDROCHLORIDE\TRIFLURIDINE
     Indication: Neoplasm malignant
     Route: 065
  7. ETOPOSIDE [Suspect]
     Active Substance: ETOPOSIDE
     Indication: Neoplasm malignant
     Route: 065
  8. MELPHALAN [Suspect]
     Active Substance: MELPHALAN
     Indication: Neoplasm malignant
     Route: 065
  9. HYDROXYUREA [Suspect]
     Active Substance: HYDROXYUREA
     Indication: Neoplasm malignant
     Route: 065
  10. CYCLOPHOSPHAMIDE [Suspect]
     Active Substance: CYCLOPHOSPHAMIDE
     Indication: Neoplasm malignant
     Route: 065
  11. FLUDARABINE [Suspect]
     Active Substance: FLUDARABINE PHOSPHATE
     Indication: Neoplasm malignant
     Route: 065
  12. MERCAPTOPURINE [Suspect]
     Active Substance: MERCAPTOPURINE
     Indication: Neoplasm malignant
     Route: 065
  13. PROCARBAZINE [Suspect]
     Active Substance: PROCARBAZINE
     Indication: Neoplasm malignant
     Route: 065
  14. TEMOZOLOMIDE [Suspect]
     Active Substance: TEMOZOLOMIDE
     Indication: Neoplasm malignant
     Route: 065
  15. GEFITINIB [Suspect]
     Active Substance: GEFITINIB
     Indication: Neoplasm malignant
     Route: 065
  16. IMATINIB [Suspect]
     Active Substance: IMATINIB
     Indication: Neoplasm malignant
     Route: 065
  17. REGORAFENIB [Suspect]
     Active Substance: REGORAFENIB
     Indication: Neoplasm malignant
     Route: 065
  18. SORAFENIB [Suspect]
     Active Substance: SORAFENIB
     Indication: Neoplasm malignant
     Route: 065
  19. AFATINIB [Suspect]
     Active Substance: AFATINIB
     Indication: Neoplasm malignant
     Route: 065
  20. EVEROLIMUS [Suspect]
     Active Substance: EVEROLIMUS
     Indication: Neoplasm malignant
     Route: 065
  21. LENVATINIB [Suspect]
     Active Substance: LENVATINIB
     Indication: Neoplasm malignant
     Route: 065
  22. SUNITINIB [Suspect]
     Active Substance: SUNITINIB
     Indication: Neoplasm malignant
     Route: 065
  23. LENALIDOMIDE [Suspect]
     Active Substance: LENALIDOMIDE
     Indication: Neoplasm malignant
     Route: 065
  24. PAZOPANIB [Suspect]
     Active Substance: PAZOPANIB
     Indication: Neoplasm malignant
     Route: 065
  25. AXITINIB [Suspect]
     Active Substance: AXITINIB
     Indication: Neoplasm malignant
     Route: 065
  26. CRIZOTINIB [Suspect]
     Active Substance: CRIZOTINIB
     Indication: Neoplasm malignant
     Route: 065
  27. NILOTINIB [Suspect]
     Active Substance: NILOTINIB
     Indication: Neoplasm malignant
     Route: 065
  28. THALIDOMIDE [Suspect]
     Active Substance: THALIDOMIDE
     Indication: Neoplasm malignant
     Route: 065
  29. LAPATINIB [Suspect]
     Active Substance: LAPATINIB
     Indication: Neoplasm malignant
     Route: 065
  30. DASATINIB [Suspect]
     Active Substance: DASATINIB
     Indication: Neoplasm malignant
     Route: 065
  31. TAMIBAROTENE [Suspect]
     Active Substance: TAMIBAROTENE
     Indication: Neoplasm malignant
     Route: 065
  32. BOSUTINIB [Suspect]
     Active Substance: BOSUTINIB
     Indication: Neoplasm malignant
     Route: 065
  33. VORINOSTAT [Suspect]
     Active Substance: VORINOSTAT
     Indication: Neoplasm malignant
     Route: 065
  34. TRETINOIN [Suspect]
     Active Substance: TRETINOIN
     Indication: Neoplasm malignant
     Route: 065

REACTIONS (47)
  - Gastrointestinal toxicity [Unknown]
  - Dizziness [Unknown]
  - Facial paralysis [Unknown]
  - Hypoglycaemia [Unknown]
  - Infusion related reaction [Unknown]
  - Haematoma muscle [Unknown]
  - Mucosal disorder [Unknown]
  - Oropharyngeal candidiasis [Unknown]
  - Hiccups [Unknown]
  - Dehydration [Unknown]
  - Enteritis [Unknown]
  - Abdominal pain upper [Unknown]
  - Pigmentation disorder [Unknown]
  - Nasal inflammation [Unknown]
  - Peripheral nerve infection [Unknown]
  - Upper respiratory tract inflammation [Unknown]
  - Cellulitis [Unknown]
  - Conjunctival haemorrhage [Unknown]
  - Fatigue [Unknown]
  - Herpes zoster [Unknown]
  - Hypercalcaemia [Unknown]
  - Melaena [Unknown]
  - Thrombosis [Unknown]
  - Vomiting [Unknown]
  - Weight decreased [Unknown]
  - Haemorrhage [Unknown]
  - Haematochezia [Unknown]
  - Chest pain [Unknown]
  - Nasopharyngitis [Unknown]
  - Constipation [Unknown]
  - Gingivitis [Unknown]
  - Cardiac failure [Unknown]
  - Hypertension [Unknown]
  - Hypothyroidism [Unknown]
  - Pruritus [Unknown]
  - Stomatitis [Unknown]
  - Decreased appetite [Unknown]
  - Diarrhoea [Unknown]
  - Pneumonia [Unknown]
  - Cytopenia [Unknown]
  - Liver disorder [Unknown]
  - Venous thrombosis [Unknown]
  - Skin reaction [Unknown]
  - Febrile neutropenia [Unknown]
  - Nausea [Unknown]
  - Pyrexia [Unknown]
  - Oedema [Unknown]
